FAERS Safety Report 9522237 (Version 2)
Quarter: 2013Q3

REPORT INFORMATION
  Report Type: Report from Study
  Country: NL (occurrence: NL)
  Receive Date: 20130913
  Receipt Date: 20130917
  Transmission Date: 20140515
  Serious: Yes (Hospitalization)
  Sender: FDA-Public Use
  Company Number: NL-AMGEN-NLDCT2013063244

PATIENT
  Age: 71 Year
  Sex: Female
  Weight: 73.5 kg

DRUGS (18)
  1. DENOSUMAB [Suspect]
     Indication: BREAST CANCER
     Dosage: 120 MG, UNK
     Route: 058
     Dates: start: 20120312
  2. INSULIN ASPART [Concomitant]
     Dosage: 7 UNK, UNK
     Route: 058
     Dates: start: 20040604
  3. VOLCOLON [Concomitant]
     Dosage: 1 UNK, UNK
     Route: 048
     Dates: start: 20111116
  4. PARACETAMOL [Concomitant]
     Dosage: 500 MG, UNK
     Route: 048
     Dates: start: 20120320, end: 20130321
  5. ESOMEPRAZOL                        /01479301/ [Concomitant]
     Dosage: 40 MG, UNK
     Route: 048
     Dates: start: 20120402
  6. FUROSEMIDE [Concomitant]
     Dosage: 40 MG, UNK
     Route: 048
     Dates: start: 20120514
  7. VESICARE [Concomitant]
     Dosage: 5 MG, UNK
     Route: 048
     Dates: start: 20120612, end: 20121217
  8. AMOXICILLINE                       /00249602/ [Concomitant]
     Dosage: 625 MG, UNK
     Route: 048
     Dates: start: 20120924, end: 20121008
  9. TOVIAZ [Concomitant]
     Dosage: 4 MG, UNK
     Route: 048
     Dates: start: 20121217, end: 20130423
  10. LEVEMIR [Concomitant]
     Dosage: 36 UNK, UNK
     Route: 058
     Dates: start: 20110418
  11. METFORMINE [Concomitant]
     Dosage: 500 MG, UNK
     Route: 048
     Dates: start: 20110221
  12. CRESTOR [Concomitant]
     Dosage: 10 MG, UNK
     Route: 048
     Dates: start: 20100413
  13. CARBASALATE CALCIUM [Concomitant]
     Dosage: 100 MG, UNK
     Route: 048
     Dates: start: 20010905
  14. AMLODIPINE [Concomitant]
     Dosage: 10 MG, UNK
     Route: 048
     Dates: start: 20080925
  15. ALISKIREN [Concomitant]
     Dosage: 150 MG, UNK
     Route: 048
     Dates: start: 20081010, end: 20130812
  16. BISOPROLOL [Concomitant]
     Dosage: 2.5 MG, UNK
     Route: 048
     Dates: start: 20081031
  17. CALCIUM [Concomitant]
     Dosage: 500 MG, UNK
     Route: 048
     Dates: start: 20120312
  18. VITAMIN D                          /00107901/ [Concomitant]
     Dosage: 400 IU, UNK
     Route: 048
     Dates: start: 20120312

REACTIONS (1)
  - Osteoarthritis [Not Recovered/Not Resolved]
